FAERS Safety Report 8353948-X (Version None)
Quarter: 2012Q2

REPORT INFORMATION
  Report Type: 
  Country: None (occurrence: None)
  Receive Date: 20120511
  Receipt Date: 20120507
  Transmission Date: 20120825
  Serious: Yes (Other)
  Sender: FDA-Public Use
  Company Number: ZA-ALLERGAN-1206473US

PATIENT

DRUGS (2)
  1. COSOPT [Concomitant]
     Dosage: UNK
  2. BIMATOPROST AND TIMOLOL MALEATE [Suspect]
     Indication: PRODUCT USED FOR UNKNOWN INDICATION
     Route: 047

REACTIONS (3)
  - CHEST PAIN [None]
  - ANXIETY [None]
  - ASTHMA [None]
